FAERS Safety Report 7291706-8 (Version None)
Quarter: 2011Q1

REPORT INFORMATION
  Report Type: 
  Country: None (occurrence: None)
  Receive Date: 20110214
  Receipt Date: 20110207
  Transmission Date: 20110831
  Serious: Yes (Hospitalization, Other)
  Sender: FDA-Public Use
  Company Number: US-PFIZER INC-US-WYE-H10835509

PATIENT
  Sex: Male
  Weight: 64.5 kg

DRUGS (8)
  1. ASPIRIN [Concomitant]
     Route: 065
  2. ZOCOR [Concomitant]
     Route: 065
  3. MUCINEX [Concomitant]
     Route: 065
  4. AVODART [Concomitant]
     Route: 065
  5. ENBREL [Suspect]
     Indication: RHEUMATOID ARTHRITIS
     Dosage: 50.0 MG, 1X/WK
     Route: 058
     Dates: start: 20040416
  6. BENICAR [Suspect]
  7. DILANTIN-125 [Suspect]
  8. METHOTREXATE [Concomitant]
     Route: 048

REACTIONS (13)
  - CORONARY ARTERY DISEASE [None]
  - EXTRASYSTOLES [None]
  - CONVULSION [None]
  - TONGUE HAEMORRHAGE [None]
  - PERIPHERAL VASCULAR DISORDER [None]
  - DIZZINESS [None]
  - MYOCARDIAL INFARCTION [None]
  - VENTRICULAR TACHYCARDIA [None]
  - VENTRICULAR FIBRILLATION [None]
  - BENIGN PROSTATIC HYPERPLASIA [None]
  - RENAL FAILURE ACUTE [None]
  - AORTIC STENOSIS [None]
  - HYPOTENSION [None]
